FAERS Safety Report 23813102 (Version 1)
Quarter: 2024Q2

REPORT INFORMATION
  Report Type: Spontaneous
  Country: US (occurrence: US)
  Receive Date: 20240503
  Receipt Date: 20240503
  Transmission Date: 20240715
  Serious: No
  Sender: FDA-Public Use
  Company Number: US-AMNEAL PHARMACEUTICALS-2023-AMRX-03562

PATIENT
  Sex: Male
  Weight: 65.76 kg

DRUGS (1)
  1. VIGABATRIN [Suspect]
     Active Substance: VIGABATRIN
     Indication: Infantile spasms
     Dosage: MIX 2 PACKETS IN 20 ML OF WATER AND GIVE/TAKE 20 ML (1000 MG TOTAL) THREE TIMES A DAY
     Route: 065
     Dates: start: 2010

REACTIONS (2)
  - Malaise [Unknown]
  - Product dose omission issue [Unknown]
